FAERS Safety Report 10539558 (Version 2)
Quarter: 2014Q4

REPORT INFORMATION
  Report Type: Spontaneous
  Country: US (occurrence: US)
  Receive Date: 20141023
  Receipt Date: 20141023
  Transmission Date: 20150529
  Serious: No
  Sender: FDA-Public Use
  Company Number: US-ALLERGAN-1407859US

PATIENT
  Age: 81 Year
  Sex: Female

DRUGS (3)
  1. AZOPT [Concomitant]
     Active Substance: BRINZOLAMIDE
     Indication: GLAUCOMA
  2. TRAVATAN [Concomitant]
     Active Substance: TRAVOPROST
     Indication: GLAUCOMA
  3. COMBIGAN[R] [Suspect]
     Active Substance: BRIMONIDINE TARTRATE\TIMOLOL MALEATE
     Indication: GLAUCOMA
     Dosage: 2 GTT, UNK
     Route: 047
     Dates: start: 2012

REACTIONS (1)
  - Chromatopsia [Not Recovered/Not Resolved]
